FAERS Safety Report 7601820 (Version 2)
Quarter: 2012Q4

REPORT INFORMATION
  Report Type: 
  Country: GB (occurrence: GB)
  Receive Date: 20100819
  Receipt Date: 20121004
  Transmission Date: 20130627
  Serious: Yes (Death)
  Sender: FDA-Public Use
  Company Number: GB-NOVEN-10GB001362

PATIENT
  Sex: Male

DRUGS (2)
  1. PAROXETINE [Suspect]
     Indication: DRUG USE FOR UNKNOWN INDICATION
     Dosage: 60 mg, daily
     Route: 065
  2. CLOZAPINE [Suspect]
     Indication: DRUG USE FOR UNKNOWN INDICATION
     Dosage: 250 mg, bid
     Route: 048
     Dates: start: 20050805, end: 20100318

REACTIONS (4)
  - Coronary artery disease [Fatal]
  - Drug level increased [Fatal]
  - Drug level increased [Fatal]
  - Circulatory collapse [Fatal]
